FAERS Safety Report 8221871-7 (Version None)
Quarter: 2012Q1

REPORT INFORMATION
  Report Type: 
  Country: None (occurrence: None)
  Receive Date: 20120320
  Receipt Date: 20120313
  Transmission Date: 20120608
  Serious: Yes (Other)
  Sender: FDA-Public Use
  Company Number: US-JNJFOC-20120112725

PATIENT
  Sex: Female
  Weight: 61.87 kg

DRUGS (1)
  1. NEOSPORIN ECZEMA ESSENTIALS DAILY MOISTURIZING CREAM [Suspect]
     Indication: ECZEMA
     Dosage: ^ENOUGH TO COVER HER NECK AND FACE^
     Route: 061
     Dates: start: 20120121, end: 20120121

REACTIONS (6)
  - ACTIVITIES OF DAILY LIVING IMPAIRED [None]
  - INFECTION [None]
  - SWELLING [None]
  - MASS [None]
  - HYPERSENSITIVITY [None]
  - CELLULITIS [None]
